FAERS Safety Report 7473072-8 (Version None)
Quarter: 2011Q2

REPORT INFORMATION
  Report Type: 
  Country: None (occurrence: None)
  Receive Date: 20110511
  Receipt Date: 20110429
  Transmission Date: 20111010
  Serious: Yes (Hospitalization, Other)
  Sender: FDA-Public Use
  Company Number: US-ELI_LILLY_AND_COMPANY-US201105000488

PATIENT
  Age: 56 Year
  Sex: Female

DRUGS (8)
  1. CYMBALTA [Suspect]
     Dosage: 20 MG, TID
  2. VITAMIN D [Concomitant]
  3. FISH OIL [Concomitant]
  4. KLONOPIN [Concomitant]
     Dosage: 1 MG, EACH EVENING
  5. CYMBALTA [Suspect]
     Indication: DEPRESSION
     Dosage: 60 MG, QD
     Dates: start: 20070101
  6. NAPROXEN (ALEVE) [Concomitant]
  7. PROZAC [Suspect]
  8. PEPCID [Concomitant]

REACTIONS (11)
  - HYPOTENSION [None]
  - MUSCLE TWITCHING [None]
  - HEART RATE INCREASED [None]
  - VOMITING [None]
  - HAEMATOMA [None]
  - SCIATIC NERVE INJURY [None]
  - HAEMORRHAGE [None]
  - SEXUAL DYSFUNCTION [None]
  - SPINAL OPERATION [None]
  - MOBILITY DECREASED [None]
  - FATIGUE [None]
